FAERS Safety Report 5677055-X (Version None)
Quarter: 2008Q1

REPORT INFORMATION
  Report Type: 
  Country: None (occurrence: None)
  Receive Date: 20080324
  Receipt Date: 20080311
  Transmission Date: 20080703
  Serious: Yes (Other)
  Sender: FDA-Public Use
  Company Number: GB-AMGEN-US265543

PATIENT
  Sex: Female
  Weight: 115 kg

DRUGS (11)
  1. ENBREL [Suspect]
     Indication: RHEUMATOID ARTHRITIS
     Route: 058
     Dates: start: 20080126, end: 20080304
  2. HYPROMELLOSE [Concomitant]
     Indication: DRY EYE
     Dosage: ONE DOSE ONCE OR TWICE DAILY
     Route: 065
  3. FEXOFENADINE [Concomitant]
     Indication: URTICARIA
     Dosage: UNKNOWN DOSE, ONCE DAILY
     Route: 065
  4. PREDNISOLONE [Concomitant]
     Indication: HYPERSENSITIVITY
     Dosage: AS REQUIRED
     Route: 065
  5. LANSOPRAZOLE [Concomitant]
     Dosage: UNKNOWN DOSE, ONCE DAILY
     Route: 065
  6. ACETAMINOPHEN W/ PROPOXYPHENE HCL [Concomitant]
     Indication: ARTHRALGIA
     Dosage: UNKNOWN DOSE, AS NEEDED
     Route: 065
  7. ASCORBIC ACID [Concomitant]
     Dosage: UNKNOWN DOSE, ONCE DAILY
     Route: 065
  8. PARACETAMOL [Concomitant]
     Indication: ARTHRALGIA
     Dosage: UNKNOWN DOSE, AS NEEDED
     Route: 065
  9. COD-LIVER OIL [Concomitant]
     Dosage: UNKNOWN DOSE, ONCE DAILY
     Route: 065
  10. SALBUTAMOL SULFATE [Concomitant]
     Dosage: AS REQUIRED
     Route: 065
  11. MULTI-VITAMINS [Concomitant]
     Dosage: UNKNOWN DOSE, ONCE DAILY
     Route: 065

REACTIONS (6)
  - INJECTION SITE ERYTHEMA [None]
  - INJECTION SITE INDURATION [None]
  - INJECTION SITE INFLAMMATION [None]
  - INJECTION SITE PRURITUS [None]
  - INJECTION SITE SWELLING [None]
  - RASH [None]
